FAERS Safety Report 6915572-2 (Version None)
Quarter: 2010Q3

REPORT INFORMATION
  Report Type: 
  Country: None (occurrence: None)
  Receive Date: 20100804
  Receipt Date: 20100726
  Transmission Date: 20110219
  Serious: Yes (Hospitalization)
  Sender: FDA-Public Use
  Company Number: 2010SP040548

PATIENT
  Age: 19 Year
  Sex: Female

DRUGS (2)
  1. DESOGESTREL/ETHINYL ESTRADIOL [Suspect]
     Indication: ORAL CONTRACEPTION
     Dosage: PO
     Route: 048
     Dates: start: 20060101, end: 20100501
  2. HERBALIFE (HERBALIFE PRODUCTS) [Suspect]
     Indication: OVERWEIGHT
     Dosage: PO
     Route: 048
     Dates: start: 20090101, end: 20090101

REACTIONS (9)
  - ABDOMINAL PAIN [None]
  - ARTHRALGIA [None]
  - HYPERTENSION [None]
  - NAUSEA [None]
  - ORTHOSTATIC INTOLERANCE [None]
  - OVERWEIGHT [None]
  - PURPURA [None]
  - SYNOVITIS [None]
  - VOMITING [None]
